FAERS Safety Report 16113560 (Version 1)
Quarter: 2019Q1

REPORT INFORMATION
  Report Type: Spontaneous
  Country: US (occurrence: US)
  Receive Date: 20190325
  Receipt Date: 20190325
  Transmission Date: 20190418
  Serious: No
  Sender: FDA-Public Use
  Company Number: US-ALLERGAN-1842568US

PATIENT
  Sex: Female

DRUGS (2)
  1. LATISSE [Suspect]
     Active Substance: BIMATOPROST
     Indication: HAIR GROWTH ABNORMAL
     Dosage: 2 GTT PER APPLICATOR, TOPICAL
     Dates: start: 20180808, end: 20180830
  2. FACIAL CREAM [Concomitant]
     Dosage: MORNING, TOPICAL

REACTIONS (7)
  - Off label use [Unknown]
  - Application site pruritus [Not Recovered/Not Resolved]
  - Application site erythema [Not Recovered/Not Resolved]
  - Madarosis [Not Recovered/Not Resolved]
  - Application site swelling [Not Recovered/Not Resolved]
  - Brow ptosis [Not Recovered/Not Resolved]
  - Mental disorder [Not Recovered/Not Resolved]

NARRATIVE: CASE EVENT DATE: 201808
